FAERS Safety Report 7228767-8 (Version None)
Quarter: 2011Q1

REPORT INFORMATION
  Report Type: 
  Country: None (occurrence: None)
  Receive Date: 20110117
  Receipt Date: 20110117
  Transmission Date: 20110831
  Serious: Yes (Other)
  Sender: FDA-Public Use
  Company Number: CZ-AMGEN-CZESP2011001111

PATIENT

DRUGS (3)
  1. NPLATE [Suspect]
     Dosage: 6.2 A?G/KG, QWK
     Dates: start: 20101216
  2. NPLATE [Suspect]
     Dosage: 7.8 A?G/KG, QWK
     Dates: start: 20110106
  3. NPLATE [Suspect]
     Indication: IDIOPATHIC THROMBOCYTOPENIC PURPURA
     Dosage: 7.8 A?G/KG, QWK
     Route: 058
     Dates: start: 20100723

REACTIONS (2)
  - THERAPEUTIC RESPONSE DECREASED [None]
  - OFF LABEL USE [None]
